FAERS Safety Report 7998210-X (Version None)
Quarter: 2011Q4

REPORT INFORMATION
  Report Type: 
  Country: None (occurrence: None)
  Receive Date: 20111221
  Receipt Date: 20110412
  Transmission Date: 20120403
  Serious: No
  Sender: FDA-Public Use
  Company Number: US-GLAXOSMITHKLINE-A0922680A

PATIENT
  Sex: Female

DRUGS (8)
  1. LOVAZA [Suspect]
     Indication: BLOOD TRIGLYCERIDES INCREASED
     Dosage: 2CAP TWICE PER DAY
     Route: 048
  2. METOPROLOL TARTRATE [Concomitant]
  3. BUMETANIDE [Concomitant]
  4. LANTUS [Concomitant]
  5. VICTOZA [Concomitant]
  6. NOVOLOG [Concomitant]
  7. DIOVAN [Concomitant]
  8. LEVOTHYROXINE SODIUM [Concomitant]

REACTIONS (2)
  - DYSGEUSIA [None]
  - ERUCTATION [None]
